FAERS Safety Report 14318753 (Version 1)
Quarter: 2017Q4

REPORT INFORMATION
  Report Type: Spontaneous
  Country: JP (occurrence: JP)
  Receive Date: 20171222
  Receipt Date: 20171222
  Transmission Date: 20180321
  Serious: Yes (Death)
  Sender: FDA-Public Use
  Company Number: JP-MALLINCKRODT-T201705315

PATIENT
  Age: 69 Year
  Sex: Male
  Weight: 61 kg

DRUGS (20)
  1. HYPEN [Concomitant]
     Active Substance: ETODOLAC
     Indication: ANALGESIC THERAPY
     Dosage: 800 MG
     Route: 048
     Dates: end: 20150807
  2. ACETAMINOPHEN. [Concomitant]
     Active Substance: ACETAMINOPHEN
     Indication: ANALGESIC THERAPY
     Dosage: 3000 MG
     Route: 048
     Dates: end: 20150807
  3. METHADONE [Suspect]
     Active Substance: METHADONE HYDROCHLORIDE
     Indication: CANCER PAIN
     Dosage: 30 MG, ONE TIME DOSE 10 MG
     Route: 048
     Dates: start: 20150508, end: 20150514
  4. TAPENTA [Concomitant]
     Active Substance: TAPENTADOL HYDROCHLORIDE
     Dosage: 400 MG
     Route: 048
     Dates: start: 20150701, end: 20150807
  5. METHADONE [Suspect]
     Active Substance: METHADONE HYDROCHLORIDE
     Dosage: 40 MG, ONE TIME DOSE 20 MG
     Route: 048
     Dates: start: 20150627, end: 20150701
  6. METHADONE [Suspect]
     Active Substance: METHADONE HYDROCHLORIDE
     Dosage: 45 MG, ONE TIME DOSE 15 MG
     Route: 048
     Dates: start: 20150515, end: 20150616
  7. RINDERON V [Concomitant]
     Active Substance: BETAMETHASONE VALERATE
     Indication: ANALGESIC THERAPY
     Dosage: 4 MG
     Route: 051
     Dates: start: 20150511, end: 20150513
  8. RINDERON V [Concomitant]
     Active Substance: BETAMETHASONE VALERATE
     Dosage: 2 MG
     Route: 051
     Dates: start: 20150514, end: 20150519
  9. TAPENTA [Concomitant]
     Active Substance: TAPENTADOL HYDROCHLORIDE
     Indication: ANALGESIC THERAPY
     Dosage: 400 MG
     Route: 048
     Dates: start: 20150621, end: 20150624
  10. MAGMITT [Concomitant]
     Active Substance: MAGNESIUM OXIDE
     Indication: PRODUCT USED FOR UNKNOWN INDICATION
     Dosage: 750 MG
     Route: 048
     Dates: end: 20150807
  11. METHADONE [Suspect]
     Active Substance: METHADONE HYDROCHLORIDE
     Dosage: 50 MG ONE TIME DOSE 25 MG
     Route: 048
     Dates: start: 20150702, end: 20150807
  12. OXINORM (OXYCODONE HYDROCHLORIDE) [Concomitant]
     Active Substance: OXYCODONE HYDROCHLORIDE
     Indication: ANALGESIC THERAPY
     Dosage: 20-40 MG, PRN (AS NEEDED)
     Route: 048
     Dates: start: 20150307
  13. VERAPAMIL HCL [Concomitant]
     Active Substance: VERAPAMIL HYDROCHLORIDE
     Indication: ANALGESIC THERAPY
     Dosage: 20 MG, PRN (AS NEEDED)
     Route: 054
     Dates: start: 20150311, end: 20150312
  14. RINDERON V [Concomitant]
     Active Substance: BETAMETHASONE VALERATE
     Dosage: 1 MG
     Route: 051
     Dates: start: 20150520, end: 20150807
  15. OPSO [Concomitant]
     Active Substance: MORPHINE HYDROCHLORIDE
     Indication: ANALGESIC THERAPY
     Dosage: 40 MG, PRN (AS NEEDED)
     Route: 048
  16. METHADONE [Suspect]
     Active Substance: METHADONE HYDROCHLORIDE
     Dosage: 60 MG, ONE TIME DOSE 30 MG
     Route: 048
     Dates: start: 20150617, end: 20150621
  17. METHADONE [Suspect]
     Active Substance: METHADONE HYDROCHLORIDE
     Dosage: 50 MG, ONE TIME DOSE 25 MG
     Route: 048
     Dates: start: 20150622, end: 20150626
  18. LYRICA [Concomitant]
     Active Substance: PREGABALIN
     Dosage: 150 MG
     Route: 048
     Dates: start: 20150522, end: 20150807
  19. TAPENTA [Concomitant]
     Active Substance: TAPENTADOL HYDROCHLORIDE
     Dosage: 300 MG
     Route: 048
     Dates: start: 20150625, end: 20150630
  20. LYRICA [Concomitant]
     Active Substance: PREGABALIN
     Indication: ANALGESIC THERAPY
     Dosage: 225 MG
     Route: 048
     Dates: start: 20150516, end: 20150521

REACTIONS (2)
  - Lung neoplasm malignant [Fatal]
  - Somnolence [Not Recovered/Not Resolved]

NARRATIVE: CASE EVENT DATE: 20150621
